FAERS Safety Report 4353629-3 (Version None)
Quarter: 2004Q2

REPORT INFORMATION
  Report Type: 
  Country: None (occurrence: None)
  Receive Date: 20040430
  Receipt Date: 20040426
  Transmission Date: 20050107
  Serious: Yes (Death)
  Sender: FDA-Public Use
  Company Number: 231927K04USA

PATIENT
  Age: 49 Year
  Sex: Male

DRUGS (3)
  1. REBIF (INTERFERON BETA) [Suspect]
     Indication: MULTIPLE SCLEROSIS
     Dosage: 44 MCG
     Dates: start: 20031001
  2. PHENYTOIN SODIUM [Concomitant]
  3. GABAPENTIN [Concomitant]

REACTIONS (2)
  - HEADACHE [None]
  - SUICIDAL IDEATION [None]
